FAERS Safety Report 7338712-2 (Version None)
Quarter: 2011Q1

REPORT INFORMATION
  Report Type: 
  Country: None (occurrence: None)
  Receive Date: 20110308
  Receipt Date: 20110228
  Transmission Date: 20110831
  Serious: Yes (Other)
  Sender: FDA-Public Use
  Company Number: B0693863A

PATIENT
  Age: 43 Year
  Sex: Male

DRUGS (2)
  1. SEROXAT [Suspect]
     Indication: SLEEP DISORDER
     Dosage: 20MG PER DAY
     Route: 048
     Dates: start: 20101228, end: 20110201
  2. CHINESE MEDICATION [Concomitant]
     Indication: PROSTATITIS
     Route: 048
     Dates: start: 20101201

REACTIONS (1)
  - HAEMATOCHEZIA [None]
